FAERS Safety Report 16820089 (Version 2)
Quarter: 2019Q4

REPORT INFORMATION
  Report Type: Report from Study
  Country: US (occurrence: US)
  Receive Date: 20190918
  Receipt Date: 20191029
  Transmission Date: 20200122
  Serious: No
  Sender: FDA-Public Use
  Company Number: US-TAKEDA-2019TUS052654

PATIENT
  Age: 57 Year
  Sex: Male

DRUGS (5)
  1. IXAZOMIB [Suspect]
     Active Substance: IXAZOMIB
     Indication: PLASMA CELL MYELOMA
     Dosage: 4 MILLIGRAM
     Route: 048
     Dates: start: 20190715
  2. ASPIRIN                            /00002701/ [Concomitant]
     Active Substance: ASPIRIN
     Dosage: UNK
     Route: 065
  3. POMALYST [Suspect]
     Active Substance: POMALIDOMIDE
     Indication: PLASMA CELL MYELOMA
     Dosage: 4 MILLIGRAM
     Route: 048
  4. ACYCLOVIR                          /00587301/ [Suspect]
     Active Substance: ACYCLOVIR
     Indication: PRODUCT USED FOR UNKNOWN INDICATION
     Dosage: UNK
     Route: 065
     Dates: start: 20190705
  5. DEXAMETHASONE. [Suspect]
     Active Substance: DEXAMETHASONE
     Indication: PLASMA CELL MYELOMA
     Dosage: 20 MILLIGRAM, 1/WEEK
     Route: 048

REACTIONS (10)
  - Erythema [Not Recovered/Not Resolved]
  - Paraesthesia [Not Recovered/Not Resolved]
  - Constipation [Recovering/Resolving]
  - Nausea [Unknown]
  - Accidental exposure to product [Unknown]
  - Burning sensation [Not Recovered/Not Resolved]
  - Fatigue [Unknown]
  - Ear discomfort [Not Recovered/Not Resolved]
  - Off label use [Unknown]
  - Product physical issue [Unknown]

NARRATIVE: CASE EVENT DATE: 20190806
